FAERS Safety Report 4510104-0 (Version None)
Quarter: 2004Q4

REPORT INFORMATION
  Report Type: 
  Country: None (occurrence: None)
  Receive Date: 20041124
  Receipt Date: 20041112
  Transmission Date: 20050328
  Serious: Yes (Other)
  Sender: FDA-Public Use
  Company Number: US-JNJFOC-20041103810

PATIENT
  Sex: Male
  Weight: 74.84 kg

DRUGS (16)
  1. INFLIXIMAB [Suspect]
     Indication: RHEUMATOID ARTHRITIS
     Route: 042
  2. ARAVA [Concomitant]
  3. PROPOXY/APAP [Concomitant]
  4. PROPOXY/APAP [Concomitant]
     Dosage: 100/650 ONCE OR TWICE DAILY
  5. ANANXYL [Concomitant]
  6. ALLOPURINOL [Concomitant]
  7. NORVASC [Concomitant]
  8. ALPRAZOLAM [Concomitant]
  9. ACCUPRIL [Concomitant]
     Indication: RHEUMATOID ARTHRITIS
  10. PLAVIX [Concomitant]
  11. PROBENECID [Concomitant]
  12. NIASPAN [Concomitant]
  13. NEXIUM [Concomitant]
  14. FOLIC ACID [Concomitant]
  15. ASPIRIN [Concomitant]
  16. VITAMIN C [Concomitant]

REACTIONS (1)
  - BASAL CELL CARCINOMA [None]
